FAERS Safety Report 9979616 (Version 2)
Quarter: 2014Q1

REPORT INFORMATION
  Report Type: Report from Study
  Country: US (occurrence: US)
  Receive Date: 20140306
  Receipt Date: 20140306
  Transmission Date: 20141002
  Serious: No
  Sender: FDA-Public Use
  Company Number: US-ABBVIE-13P-163-1168461-00

PATIENT
  Age: 60 Year
  Sex: Male

DRUGS (16)
  1. HUMIRA [Suspect]
     Indication: PSORIASIS
     Route: 058
     Dates: start: 201309
  2. ATROVASTATIN [Concomitant]
     Indication: BLOOD CHOLESTEROL
     Route: 048
  3. METFORMIN [Concomitant]
     Indication: DIABETES MELLITUS
     Dosage: WITH FOOD
     Route: 048
  4. GLIPIZIDE [Concomitant]
     Indication: DIABETES MELLITUS
     Dosage: 30 MINUTES BEFORE BREAKFAST AND DINNER
     Route: 048
  5. INSULIN [Concomitant]
     Indication: DIABETES MELLITUS
     Dosage: AT NIGHT
  6. LISINIOPRIL [Concomitant]
     Indication: HYPERTENSION
     Dosage: AT NIGHT
     Route: 048
  7. CLOPIDOGREL [Concomitant]
     Indication: CORONARY ARTERIAL STENT INSERTION
     Route: 048
  8. FENOFIBRATE [Concomitant]
     Indication: PRODUCT USED FOR UNKNOWN INDICATION
     Dosage: WITH FOOD
     Route: 048
  9. CARVEDILOL [Concomitant]
     Indication: HYPERTENSION
     Route: 048
  10. CARVEDILOL [Concomitant]
     Indication: CARDIAC DISORDER
  11. FLUOXETINE [Concomitant]
     Indication: DEPRESSION
     Route: 048
  12. FAMOTIDINE [Concomitant]
     Indication: GASTROOESOPHAGEAL REFLUX DISEASE
     Dosage: BID PRN
     Route: 048
  13. METHOCARBAMOL [Concomitant]
     Indication: MUSCLE SPASMS
     Dosage: PRN TID
     Route: 048
  14. NTG [Concomitant]
     Indication: PRODUCT USED FOR UNKNOWN INDICATION
     Dosage: 1 AM PLACE IN AM AND REMOVE IN PM BEFORE BED
     Route: 062
  15. OTC STOOL SOFTNER [Concomitant]
     Indication: CONSTIPATION
  16. ASA [Concomitant]
     Indication: PRODUCT USED FOR UNKNOWN INDICATION

REACTIONS (7)
  - Neck pain [Unknown]
  - Lacrimation increased [Unknown]
  - Haemoptysis [Unknown]
  - Influenza [Recovered/Resolved]
  - Injection site haemorrhage [Unknown]
  - Viral infection [Recovered/Resolved]
  - Gastroenteritis [Recovered/Resolved]
